FAERS Safety Report 11109738 (Version 2)
Quarter: 2015Q2

REPORT INFORMATION
  Report Type: Spontaneous
  Country: AU (occurrence: AU)
  Receive Date: 20150513
  Receipt Date: 20150604
  Transmission Date: 20150821
  Serious: No
  Sender: FDA-Public Use
  Company Number: AU-ELI_LILLY_AND_COMPANY-AU201505001102

PATIENT
  Age: 94 Year
  Sex: Female

DRUGS (4)
  1. LANZEK [Concomitant]
     Indication: AGITATION
  2. ZYPREXA ZYDIS [Suspect]
     Active Substance: OLANZAPINE
     Indication: AGITATION
  3. ZYPREXA ZYDIS [Suspect]
     Active Substance: OLANZAPINE
     Indication: ANXIETY
     Dosage: 2.5 MG, EACH EVENING
     Route: 048
  4. LANZEK [Concomitant]
     Indication: ANXIETY
     Dosage: UNK, UNKNOWN
     Route: 065

REACTIONS (4)
  - Off label use [Unknown]
  - Drug ineffective [Unknown]
  - Decreased interest [Unknown]
  - Mood swings [Unknown]
